FAERS Safety Report 23635786 (Version 1)
Quarter: 2024Q1

REPORT INFORMATION
  Report Type: Spontaneous
  Country: CA (occurrence: CA)
  Receive Date: 20240315
  Receipt Date: 20240315
  Transmission Date: 20240409
  Serious: Yes (Death, Hospitalization, Other)
  Sender: FDA-Public Use
  Company Number: CA-IPSEN Group, Research and Development-2024-04214

PATIENT
  Age: 63 Year
  Sex: Male
  Weight: 67 kg

DRUGS (6)
  1. LANREOTIDE ACETATE [Suspect]
     Active Substance: LANREOTIDE ACETATE
     Indication: Pancreatic neuroendocrine tumour metastatic
     Route: 058
  2. FAMOTIDINE [Concomitant]
     Active Substance: FAMOTIDINE
  3. PERINDOPRIL [Concomitant]
     Active Substance: PERINDOPRIL
  4. POTASSIUM CHLORIDE [Concomitant]
     Active Substance: POTASSIUM CHLORIDE
  5. SUCRALFATE [Concomitant]
     Active Substance: SUCRALFATE
  6. SUTENT [Concomitant]
     Active Substance: SUNITINIB MALATE

REACTIONS (3)
  - Acquired haemophilia [Fatal]
  - Haemoglobinaemia [Fatal]
  - Transfusion [Fatal]
